FAERS Safety Report 9617320 (Version 2)
Quarter: 2013Q4

REPORT INFORMATION
  Report Type: Spontaneous
  Country: GB (occurrence: IE)
  Receive Date: 20131011
  Receipt Date: 20131220
  Transmission Date: 20140711
  Serious: Yes (Hospitalization, Other)
  Sender: FDA-Public Use
  Company Number: GB-BRISTOL-MYERS SQUIBB COMPANY-19511740

PATIENT
  Age: 85 Year
  Sex: Female
  Weight: 61 kg

DRUGS (7)
  1. ELIQUIS [Suspect]
     Indication: TRANSIENT ISCHAEMIC ATTACK
     Route: 048
     Dates: start: 20130807, end: 20130916
  2. ASPIRIN [Concomitant]
  3. OMEPRAZOLE [Concomitant]
     Route: 048
  4. SIMVASTATIN [Concomitant]
     Route: 048
  5. BISOPROLOL [Concomitant]
  6. DOXAZOSIN [Concomitant]
  7. ZOPICLONE [Concomitant]

REACTIONS (1)
  - Transient ischaemic attack [Recovered/Resolved]
